FAERS Safety Report 25663508 (Version 2)
Quarter: 2025Q3

REPORT INFORMATION
  Report Type: Spontaneous
  Country: EU (occurrence: EU)
  Receive Date: 20250811
  Receipt Date: 20250820
  Transmission Date: 20251020
  Serious: Yes (Other)
  Sender: TEVA
  Company Number: EU-TEVA-VS-3360771

PATIENT
  Age: 9 Year
  Sex: Female

DRUGS (1)
  1. THEOPHYLLINE [Suspect]
     Active Substance: THEOPHYLLINE
     Indication: ADCY5-related dyskinesia
     Dosage: SLOW-RELEASE FORMULATION; 21.74 MG/KG/DAY
     Route: 065

REACTIONS (2)
  - Dystonia [Unknown]
  - Off label use [Unknown]
